FAERS Safety Report 5349274-3 (Version None)
Quarter: 2007Q2

REPORT INFORMATION
  Report Type: 
  Country: None (occurrence: None)
  Receive Date: 20070607
  Receipt Date: 20070601
  Transmission Date: 20071010
  Serious: Yes (Other)
  Sender: FDA-Public Use
  Company Number: A0653819A

PATIENT
  Age: 63 Year
  Sex: Female

DRUGS (6)
  1. ADVAIR DISKUS 100/50 [Suspect]
     Indication: ASTHMA
     Route: 055
     Dates: start: 20050101, end: 20070411
  2. FLOVENT [Suspect]
     Indication: ASTHMA
     Route: 055
     Dates: start: 20050101
  3. SEREVENT [Suspect]
     Indication: ASTHMA
     Route: 055
     Dates: start: 20050101
  4. SINGULAIR [Concomitant]
  5. FOSAMAX [Concomitant]
  6. ALBUTEROL [Concomitant]

REACTIONS (5)
  - ATELECTASIS [None]
  - BRONCHITIS [None]
  - DYSPHONIA [None]
  - DYSPNOEA [None]
  - PNEUMONIA [None]
